FAERS Safety Report 19092479 (Version 10)
Quarter: 2025Q2

REPORT INFORMATION
  Report Type: Spontaneous
  Country: US (occurrence: US)
  Receive Date: 20210405
  Receipt Date: 20250618
  Transmission Date: 20250717
  Serious: Yes (Hospitalization, Other)
  Sender: PFIZER
  Company Number: US-PFIZER INC-2021334951

PATIENT
  Age: 58 Year
  Sex: Female

DRUGS (29)
  1. IBRANCE [Suspect]
     Active Substance: PALBOCICLIB
     Indication: Breast cancer female
     Dates: start: 20191107
  2. IBRANCE [Suspect]
     Active Substance: PALBOCICLIB
     Route: 048
     Dates: start: 20200512
  3. IBRANCE [Suspect]
     Active Substance: PALBOCICLIB
     Dates: end: 202103
  4. IBRANCE [Suspect]
     Active Substance: PALBOCICLIB
  5. IBRANCE [Suspect]
     Active Substance: PALBOCICLIB
     Route: 048
     Dates: start: 20220322
  6. IBRANCE [Suspect]
     Active Substance: PALBOCICLIB
     Route: 048
  7. IBRANCE [Suspect]
     Active Substance: PALBOCICLIB
     Route: 048
  8. EZETIMIBE [Concomitant]
     Active Substance: EZETIMIBE
  9. FLUCONAZOLE [Concomitant]
     Active Substance: FLUCONAZOLE
  10. LETROZOLE [Concomitant]
     Active Substance: LETROZOLE
  11. OMEPRAZOLE [Concomitant]
     Active Substance: OMEPRAZOLE
  12. FAMOTIDINE [Concomitant]
     Active Substance: FAMOTIDINE
  13. METOPROLOL SUCCINATE [Concomitant]
     Active Substance: METOPROLOL SUCCINATE
  14. ALBUTEROL SULFATE [Concomitant]
     Active Substance: ALBUTEROL SULFATE
  15. LABETALOL [Concomitant]
     Active Substance: LABETALOL
  16. HERBALS\TURMERIC [Concomitant]
     Active Substance: HERBALS\TURMERIC
  17. CHOLECALCIFEROL [Concomitant]
     Active Substance: CHOLECALCIFEROL
  18. AMLODIPINE [Concomitant]
     Active Substance: AMLODIPINE BESYLATE
  19. AMOXICILLIN\CLAVULANIC ACID [Concomitant]
     Active Substance: AMOXICILLIN\CLAVULANIC ACID
  20. CELECOXIB [Concomitant]
     Active Substance: CELECOXIB
  21. BETAMETHASONE\CLOTRIMAZOLE [Concomitant]
     Active Substance: BETAMETHASONE\CLOTRIMAZOLE
  22. CYCLOBENZAPRINE [Concomitant]
     Active Substance: CYCLOBENZAPRINE
  23. DIFICID [Concomitant]
     Active Substance: FIDAXOMICIN
  24. ONDANSETRON [Concomitant]
     Active Substance: ONDANSETRON
  25. VANCOMYCIN [Concomitant]
     Active Substance: VANCOMYCIN
  26. METOPROLOL SUCCINATE [Concomitant]
     Active Substance: METOPROLOL SUCCINATE
  27. FLONASE [Concomitant]
     Active Substance: FLUTICASONE PROPIONATE
  28. PREDNISONE [Concomitant]
     Active Substance: PREDNISONE
  29. TIZANIDINE [Concomitant]
     Active Substance: TIZANIDINE

REACTIONS (8)
  - Neutropenia [Unknown]
  - Thrombocytopenia [Recovering/Resolving]
  - COVID-19 [Unknown]
  - White blood cell count decreased [Unknown]
  - Sinusitis [Unknown]
  - Liver function test increased [Not Recovered/Not Resolved]
  - Hepatitis A [Unknown]
  - Off label use [Unknown]

NARRATIVE: CASE EVENT DATE: 20210301
